FAERS Safety Report 23674262 (Version 2)
Quarter: 2024Q1

REPORT INFORMATION
  Report Type: Spontaneous
  Country: JP (occurrence: JP)
  Receive Date: 20240326
  Receipt Date: 20240329
  Transmission Date: 20240409
  Serious: Yes (Death, Life-Threatening, Hospitalization, Other)
  Sender: FDA-Public Use
  Company Number: JP-MLMSERVICE-20240315-4887703-1

PATIENT
  Age: 76 Year
  Sex: Male

DRUGS (6)
  1. OXALIPLATIN [Suspect]
     Active Substance: OXALIPLATIN
     Indication: Gastric cancer recurrent
     Dosage: FIRST TO FOURTH DOSE
     Dates: start: 202202, end: 2022
  2. OXALIPLATIN [Suspect]
     Active Substance: OXALIPLATIN
     Dosage: 100 MG/M2 FIFTH DOSE, 150MG/BODY
     Dates: start: 202205
  3. NIVOLUMAB [Suspect]
     Active Substance: NIVOLUMAB
     Indication: Gastric cancer recurrent
     Dosage: FIRST TO FOURTH DOSE
     Dates: start: 202202, end: 2022
  4. NIVOLUMAB [Suspect]
     Active Substance: NIVOLUMAB
     Dosage: FIFTH DOSE, 360 MG/BODY
     Dates: start: 202205
  5. GIMERACIL\OTERACIL\TEGAFUR [Suspect]
     Active Substance: GIMERACIL\OTERACIL POTASSIUM\TEGAFUR
     Indication: Gastric cancer recurrent
     Dosage: 80 MG,QD (1D) FIFTH DOSE
     Dates: start: 202205
  6. GIMERACIL\OTERACIL\TEGAFUR [Suspect]
     Active Substance: GIMERACIL\OTERACIL POTASSIUM\TEGAFUR
     Dosage: FIRST TO FOURTH DOSE
     Dates: start: 202202, end: 2022

REACTIONS (10)
  - Pneumonia bacterial [Fatal]
  - Disseminated intravascular coagulation [Fatal]
  - Pneumonia streptococcal [Fatal]
  - Diffuse alveolar damage [Fatal]
  - Organising pneumonia [Fatal]
  - Pneumocystis jirovecii pneumonia [Fatal]
  - Septic shock [Recovering/Resolving]
  - Pyrexia [Fatal]
  - Dyspnoea [Fatal]
  - Hypoxia [Fatal]
